FAERS Safety Report 5012044-X (Version None)
Quarter: 2006Q2

REPORT INFORMATION
  Report Type: 
  Country: None (occurrence: None)
  Receive Date: 20060526
  Receipt Date: 20060515
  Transmission Date: 20061013
  Serious: Yes (Other)
  Sender: FDA-Public Use
  Company Number: BR-GLAXOSMITHKLINE-A0606962A

PATIENT
  Age: 66 Year
  Sex: Female
  Weight: 85 kg

DRUGS (4)
  1. AVANDIA [Suspect]
     Indication: DIABETES MELLITUS
     Route: 048
     Dates: start: 20010514
  2. AMARYL [Concomitant]
     Dates: start: 20010501
  3. PHYTOTHERAPY [Concomitant]
     Dates: start: 20040501
  4. GLUCOSAMINE CHONDROITIN [Concomitant]
     Dates: start: 20050101

REACTIONS (3)
  - ANAEMIA [None]
  - ARTHRALGIA [None]
  - OSTEOARTHRITIS [None]
